FAERS Safety Report 5232266-2 (Version None)
Quarter: 2007Q1

REPORT INFORMATION
  Report Type: 
  Country: None (occurrence: None)
  Receive Date: 20070207
  Receipt Date: 20070201
  Transmission Date: 20070707
  Serious: Yes (Hospitalization, Other)
  Sender: FDA-Public Use
  Company Number: US-BAYER-200710244BWH

PATIENT
  Age: 65 Year
  Sex: Male
  Weight: 91 kg

DRUGS (13)
  1. SORAFENIB [Suspect]
     Indication: MYELODYSPLASTIC SYNDROME
     Dosage: TOTAL DAILY DOSE: 800 MG  UNIT DOSE: 200 MG
     Route: 048
     Dates: start: 20061218, end: 20070107
  2. SORAFENIB [Suspect]
     Dosage: TOTAL DAILY DOSE: 800 MG  UNIT DOSE: 200 MG
     Route: 048
     Dates: start: 20070119
  3. AVALIDE [Concomitant]
  4. COREG [Concomitant]
     Dosage: TOTAL DAILY DOSE: 50 MG
  5. CRESTOR [Concomitant]
  6. LASIX [Concomitant]
  7. WELLBUTRIN XL [Concomitant]
     Dosage: TOTAL DAILY DOSE: 300 MG
  8. POTASSIUM CHLORIDE [Concomitant]
     Route: 048
  9. VITAMIN B COMPLEX CAP [Concomitant]
  10. ARANESP [Concomitant]
     Dates: start: 20061211, end: 20061211
  11. VIDAZA [Concomitant]
  12. DACOGEN [Concomitant]
     Dates: start: 20061110, end: 20061114
  13. PROCRIT [Concomitant]
     Dates: start: 20061116, end: 20061116

REACTIONS (9)
  - ABDOMINAL DISTENSION [None]
  - DIARRHOEA [None]
  - DIVERTICULITIS [None]
  - DIVERTICULUM [None]
  - GASTROINTESTINAL DISORDER [None]
  - HAEMATEMESIS [None]
  - HYPONATRAEMIA [None]
  - SMALL INTESTINAL OBSTRUCTION [None]
  - VOMITING [None]
